FAERS Safety Report 5986920-5 (Version None)
Quarter: 2008Q4

REPORT INFORMATION
  Report Type: 
  Country: None (occurrence: None)
  Receive Date: 20081209
  Receipt Date: 20081202
  Transmission Date: 20090506
  Serious: Yes (Hospitalization)
  Sender: FDA-Public Use
  Company Number: US-AMGEN-US319570

PATIENT
  Sex: Male

DRUGS (4)
  1. AMG 655 [Suspect]
     Indication: NEOPLASM MALIGNANT
     Route: 042
     Dates: start: 20081001, end: 20081029
  2. PANITUMUMAB [Suspect]
     Indication: NEOPLASM MALIGNANT
     Route: 042
     Dates: start: 20081001, end: 20081029
  3. COUMADIN [Concomitant]
  4. UNSPECIFIED INTRAVENOUS FLUIDS [Concomitant]
     Route: 042
     Dates: start: 20081114, end: 20081115

REACTIONS (3)
  - DEHYDRATION [None]
  - NAUSEA [None]
  - VOMITING [None]
